FAERS Safety Report 10676103 (Version 1)
Quarter: 2014Q4

REPORT INFORMATION
  Report Type: Spontaneous
  Country: BR (occurrence: BR)
  Receive Date: 20141226
  Receipt Date: 20141226
  Transmission Date: 20150529
  Serious: Yes (Other)
  Sender: FDA-Public Use
  Company Number: BR-ROCHE-1512933

PATIENT
  Age: 87 Year
  Sex: Female

DRUGS (1)
  1. LUCENTIS [Suspect]
     Active Substance: RANIBIZUMAB
     Indication: CHOROIDAL NEOVASCULARISATION
     Route: 050

REACTIONS (8)
  - Disease progression [Unknown]
  - Age-related macular degeneration [Unknown]
  - Off label use [Unknown]
  - Macular oedema [Unknown]
  - Retinal detachment [Unknown]
  - Concomitant disease progression [Unknown]
  - Retinal neovascularisation [Unknown]
  - Retinal depigmentation [Unknown]
